FAERS Safety Report 9536419 (Version 1)
Quarter: 2013Q3

REPORT INFORMATION
  Report Type: Spontaneous
  Country: CA (occurrence: CA)
  Receive Date: 20130919
  Receipt Date: 20130919
  Transmission Date: 20140515
  Serious: Yes (Hospitalization, Other)
  Sender: FDA-Public Use
  Company Number: CA-BAYER-2013-110470

PATIENT
  Age: 53 Year
  Sex: Male

DRUGS (12)
  1. NEXAVAR [Suspect]
     Dosage: 2 EVERY 1 DAY (400 MG DAILY)
     Route: 048
  2. AVANDAMET [Suspect]
     Route: 065
  3. GLICLAZIDE [Suspect]
     Route: 065
  4. JANUVIA [Suspect]
     Route: 048
  5. LEVEMIR [Suspect]
     Route: 065
  6. METOPROLOL [Suspect]
     Route: 048
  7. PLACEBO [Suspect]
     Route: 065
  8. SUTENT [Suspect]
     Dosage: 50 MG, QD
     Route: 048
  9. ASPIRIN [Concomitant]
  10. AVALIDE [Concomitant]
  11. CADUET [Concomitant]
  12. LISINOPRIL [Concomitant]

REACTIONS (2)
  - Metabolic acidosis [None]
  - Hypoglycaemia [None]
